FAERS Safety Report 21557720 (Version 1)
Quarter: 2022Q4

REPORT INFORMATION
  Report Type: Report from Study
  Country: US (occurrence: US)
  Receive Date: 20221106
  Receipt Date: 20221106
  Transmission Date: 20230113
  Serious: No
  Sender: FDA-Public Use
  Company Number: US-JNJFOC-20221043415

PATIENT
  Age: 3 Decade
  Sex: Male

DRUGS (3)
  1. STELARA [Suspect]
     Active Substance: USTEKINUMAB
     Indication: Colitis ulcerative
     Dosage: STRENGTH: 90.00 MG/ML
     Route: 058
     Dates: start: 20201030
  2. STELARA [Suspect]
     Active Substance: USTEKINUMAB
  3. ATOMOXETINE [Suspect]
     Active Substance: ATOMOXETINE
     Route: 065

REACTIONS (3)
  - Syringe issue [Unknown]
  - Underdose [Unknown]
  - Nausea [Not Recovered/Not Resolved]

NARRATIVE: CASE EVENT DATE: 20220101
